FAERS Safety Report 6688243-8 (Version None)
Quarter: 2010Q2

REPORT INFORMATION
  Report Type: 
  Country: None (occurrence: None)
  Receive Date: 20100420
  Receipt Date: 20100408
  Transmission Date: 20101027
  Serious: Yes (Life-Threatening)
  Sender: FDA-Public Use
  Company Number: CA-SANOFI-AVENTIS-2010SA020636

PATIENT

DRUGS (1)
  1. MULTAQ [Suspect]
     Indication: VENTRICULAR FIBRILLATION
     Route: 048

REACTIONS (1)
  - CARDIAC FAILURE [None]
